FAERS Safety Report 25258523 (Version 3)
Quarter: 2025Q3

REPORT INFORMATION
  Report Type: Report from Study
  Country: US (occurrence: US)
  Receive Date: 20250501
  Receipt Date: 20250901
  Transmission Date: 20251021
  Serious: Yes (Death, Hospitalization, Other)
  Sender: ALEXION PHARMACEUTICALS
  Company Number: US-AstraZeneca-CH-00857340A

PATIENT
  Age: 73 Year
  Sex: Male
  Weight: 65.7 kg

DRUGS (6)
  1. ACALABRUTINIB [Suspect]
     Active Substance: ACALABRUTINIB
     Indication: Chronic lymphocytic leukaemia
     Dosage: 100 MILLIGRAM, QD
     Dates: start: 20230508
  2. COVID-19 VACCINE NOS [Suspect]
     Active Substance: COVID-19 VACCINE
     Route: 065
  3. INFLUENZA VIRUS VACCINE [Concomitant]
     Active Substance: INFLUENZA VIRUS VACCINE
  4. TENOFOVIR [Concomitant]
     Active Substance: TENOFOVIR
     Route: 065
  5. IMODIUM [Concomitant]
     Active Substance: LOPERAMIDE HYDROCHLORIDE
     Route: 065
  6. FUROSEMIDE [Concomitant]
     Active Substance: FUROSEMIDE
     Route: 065

REACTIONS (71)
  - Chronic lymphocytic inflammation with pontine perivascular enhancement responsive to steroids [Fatal]
  - Ascites [Recovering/Resolving]
  - Haemorrhoids [Recovering/Resolving]
  - Fatigue [Recovering/Resolving]
  - Hepatic cirrhosis [Unknown]
  - Pancytopenia [Unknown]
  - Weight decreased [Unknown]
  - Splenomegaly [Unknown]
  - Lymphoma [Unknown]
  - Diarrhoea [Unknown]
  - Haemorrhoids [Unknown]
  - Abdominal discomfort [Unknown]
  - Blood pressure increased [Unknown]
  - Cholecystitis [Unknown]
  - Muscle spasms [Unknown]
  - Blood calcium decreased [Unknown]
  - Protein total decreased [Unknown]
  - Pollakiuria [Unknown]
  - Hypotension [Unknown]
  - Dyspnoea [Unknown]
  - Pain [Unknown]
  - Constipation [Unknown]
  - Renal impairment [Unknown]
  - Varices oesophageal [Unknown]
  - Malaise [Unknown]
  - Haemangioma of liver [Unknown]
  - Nausea [Unknown]
  - Vomiting [Unknown]
  - Haematoma [Unknown]
  - White blood cell count [Unknown]
  - Anaemia [Unknown]
  - Leukocytosis [Unknown]
  - Thrombocytopenia [Unknown]
  - Rectal abscess [Unknown]
  - Hepatomegaly [Unknown]
  - Neutropenia [Unknown]
  - Renal failure [Unknown]
  - Abdominal tenderness [Unknown]
  - Pain in extremity [Unknown]
  - Haematochezia [Unknown]
  - Jaundice [Unknown]
  - Chronic kidney disease [Unknown]
  - Lactic acidosis [Unknown]
  - Acute kidney injury [Unknown]
  - Hepatic encephalopathy [Unknown]
  - Hepatic failure [Unknown]
  - Respiratory failure [Unknown]
  - Shock [Unknown]
  - Confusional state [Unknown]
  - Asthenia [Unknown]
  - Hypoglycaemia [Unknown]
  - Hypotension [Unknown]
  - Hypothermia [Unknown]
  - Metabolic acidosis [Unknown]
  - Hyperkalaemia [Unknown]
  - Aspiration [Unknown]
  - Antinuclear antibody positive [Unknown]
  - Hepatitis [Unknown]
  - Idiopathic urticaria [Unknown]
  - Arthralgia [Unknown]
  - Cognitive disorder [Unknown]
  - Urinary tract infection [Unknown]
  - Pneumonia [Unknown]
  - Electrolyte imbalance [Unknown]
  - Renal cyst [Unknown]
  - Respiratory failure [Unknown]
  - Coagulopathy [Unknown]
  - Bandaemia [Unknown]
  - Hypertransaminasaemia [Unknown]
  - Hypomagnesaemia [Unknown]
  - Hypoproteinaemia [Unknown]

NARRATIVE: CASE EVENT DATE: 20250417
